FAERS Safety Report 8985579 (Version 1)
Quarter: 2012Q4

REPORT INFORMATION
  Report Type: 
  Country: FR (occurrence: FR)
  Receive Date: 20121226
  Receipt Date: 20121226
  Transmission Date: 20130627
  Serious: Yes (Hospitalization, Other)
  Sender: FDA-Public Use
  Company Number: FR-JNJFOC-20121207984

PATIENT
  Age: 89 None
  Sex: Female

DRUGS (4)
  1. RISPERDAL [Suspect]
     Indication: ABNORMAL BEHAVIOUR
     Dosage: half dose
     Route: 048
  2. RISPERDAL [Suspect]
     Indication: ABNORMAL BEHAVIOUR
     Route: 048
     Dates: start: 20120529
  3. DEPAMIDE [Suspect]
     Indication: ABNORMAL BEHAVIOUR
     Route: 065
     Dates: start: 20120529
  4. DEPAMIDE [Suspect]
     Indication: ABNORMAL BEHAVIOUR
     Route: 065
     Dates: end: 20120825

REACTIONS (4)
  - Lung disorder [Unknown]
  - Cognitive disorder [Recovering/Resolving]
  - Balance disorder [Recovering/Resolving]
  - Gait disturbance [Recovering/Resolving]
